FAERS Safety Report 22366964 (Version 1)
Quarter: 2023Q2

REPORT INFORMATION
  Report Type: Spontaneous
  Country: US (occurrence: None)
  Receive Date: 20230525
  Receipt Date: 20230525
  Transmission Date: 20230721
  Serious: No
  Sender: FDA-Public Use
  Company Number: None

PATIENT
  Age: 36 Year
  Sex: Female
  Weight: 74.25 kg

DRUGS (2)
  1. OZEMPIC [Suspect]
     Active Substance: SEMAGLUTIDE
     Indication: Glycosylated haemoglobin increased
     Dosage: OTHER FREQUENCY : 1DOSE WEEKLY;?
     Route: 058
     Dates: start: 20220601, end: 20221231
  2. Microgestin birth control [Concomitant]

REACTIONS (1)
  - Alopecia [None]
